FAERS Safety Report 5338789-X (Version None)
Quarter: 2007Q2

REPORT INFORMATION
  Report Type: 
  Country: None (occurrence: None)
  Receive Date: 20070328
  Receipt Date: 20060429
  Transmission Date: 20071010
  Serious: Yes (Hospitalization)
  Sender: FDA-Public Use
  Company Number: K200600568

PATIENT
  Age: 90 Year
  Sex: Female
  Weight: 54.4 kg

DRUGS (1)
  1. ALTACE [Suspect]
     Indication: CORONARY ARTERY DISEASE
     Dosage: 5 MG, QD, ORAL
     Route: 048
     Dates: start: 20060101, end: 20060401

REACTIONS (1)
  - NEUTROPENIA [None]
